FAERS Safety Report 9717004 (Version 1)
Quarter: 2013Q4

REPORT INFORMATION
  Report Type: Spontaneous
  Country: US (occurrence: US)
  Receive Date: 20131127
  Receipt Date: 20131127
  Transmission Date: 20140711
  Serious: No
  Sender: FDA-Public Use
  Company Number: US-GILEAD-2009-0020306

PATIENT
  Sex: Female
  Weight: 72.57 kg

DRUGS (19)
  1. LETAIRIS [Suspect]
     Indication: PULMONARY ARTERIAL HYPERTENSION
     Route: 048
     Dates: start: 20081002
  2. FUROSEMIDE [Concomitant]
  3. PROCARDIA [Concomitant]
  4. TOPROL XL [Concomitant]
  5. CUPRIMINE [Concomitant]
  6. AMARYL [Concomitant]
  7. LIPITOR [Concomitant]
  8. MUCOSIL CMPD [Concomitant]
  9. EVOXAC [Concomitant]
  10. ACTONEL [Concomitant]
  11. ASPIRIN [Concomitant]
  12. ACIPHEX [Concomitant]
  13. DARVOCET-N [Concomitant]
  14. TYLENOL EX-STRENGTH [Concomitant]
  15. GILKO BILOBA [Concomitant]
  16. TRAVATON [Concomitant]
     Route: 047
  17. OCUVITE [Concomitant]
  18. MULTIVITAMINS [Concomitant]
  19. LOCOID LIPOCREAM [Concomitant]

REACTIONS (2)
  - Dizziness [Unknown]
  - Muscle spasms [Unknown]
